FAERS Safety Report 9300141 (Version 1)
Quarter: 2013Q2

REPORT INFORMATION
  Report Type: Spontaneous
  Country: NI (occurrence: NI)
  Receive Date: 20130521
  Receipt Date: 20130521
  Transmission Date: 20140414
  Serious: Yes (Other)
  Sender: FDA-Public Use
  Company Number: NI-JNJFOC-20130506265

PATIENT
  Age: 82 Year
  Sex: Male

DRUGS (2)
  1. ZYTIGA [Suspect]
     Indication: PROSTATE CANCER
     Route: 048
  2. PREDNISOLONE [Concomitant]
     Indication: PROSTATE CANCER
     Route: 065

REACTIONS (4)
  - Prostatic specific antigen increased [Not Recovered/Not Resolved]
  - Bone pain [Not Recovered/Not Resolved]
  - Bone pain [Not Recovered/Not Resolved]
  - Drug ineffective [Not Recovered/Not Resolved]
